FAERS Safety Report 15614330 (Version 8)
Quarter: 2019Q2

REPORT INFORMATION
  Report Type: Report from Study
  Country: US (occurrence: US)
  Receive Date: 20181113
  Receipt Date: 20190603
  Transmission Date: 20190711
  Serious: Yes (Hospitalization)
  Sender: FDA-Public Use
  Company Number: US-ACTELION-A-NJ2018-171747

PATIENT
  Age: 35 Year
  Sex: Female
  Weight: 95.24 kg

DRUGS (2)
  1. VELETRI [Suspect]
     Active Substance: EPOPROSTENOL
     Indication: PULMONARY ARTERIAL HYPERTENSION
     Dosage: 20 NG/KG, PER MIN
     Route: 042
  2. VELETRI [Suspect]
     Active Substance: EPOPROSTENOL
     Dosage: 5 NG/KG, PER MIN
     Route: 042

REACTIONS (16)
  - Thrombosis [Unknown]
  - Catheter site pruritus [Unknown]
  - Nausea [Not Recovered/Not Resolved]
  - Catheter management [Recovered/Resolved]
  - Catheter site pain [Unknown]
  - Malaise [Unknown]
  - Swelling [Recovered/Resolved]
  - Pain in jaw [Not Recovered/Not Resolved]
  - Dizziness [Recovering/Resolving]
  - Device dislocation [Recovered/Resolved]
  - Drug hypersensitivity [Unknown]
  - Headache [Unknown]
  - Device breakage [Recovered/Resolved]
  - Gastric disorder [Unknown]
  - Diarrhoea [Unknown]
  - Catheter site irritation [Unknown]

NARRATIVE: CASE EVENT DATE: 20180426
